FAERS Safety Report 6446078-5 (Version None)
Quarter: 2009Q4

REPORT INFORMATION
  Report Type: 
  Country: None (occurrence: None)
  Receive Date: 20091119
  Receipt Date: 20091109
  Transmission Date: 20100525
  Serious: Yes (Hospitalization, Other)
  Sender: FDA-Public Use
  Company Number: US-JNJFOC-20090608359

PATIENT
  Sex: Male
  Weight: 61.69 kg

DRUGS (7)
  1. REMICADE [Suspect]
     Dosage: AT WEEK 10
     Route: 042
  2. REMICADE [Suspect]
     Indication: COLITIS ULCERATIVE
     Route: 042
  3. MERCAPTOPURINE [Suspect]
     Indication: COLITIS ULCERATIVE
  4. HUMIRA [Suspect]
     Indication: DRUG USE FOR UNKNOWN INDICATION
  5. PURINETHOL [Concomitant]
  6. PREDNISONE [Concomitant]
     Dosage: 26-MAY-2009 AND BEFORE
  7. ACTONEL [Concomitant]
     Indication: BONE DENSITY DECREASED
     Dosage: 26-MAY-2009 AND BEFORE

REACTIONS (7)
  - COLECTOMY [None]
  - DEEP VEIN THROMBOSIS [None]
  - DEMYELINATION [None]
  - DIPLOPIA [None]
  - DRUG INEFFECTIVE [None]
  - PARAESTHESIA [None]
  - PYREXIA [None]
